FAERS Safety Report 14412784 (Version 2)
Quarter: 2018Q1

REPORT INFORMATION
  Report Type: Spontaneous
  Country: CA (occurrence: CA)
  Receive Date: 20180119
  Receipt Date: 20180213
  Transmission Date: 20180509
  Serious: Yes (Other)
  Sender: FDA-Public Use
  Company Number: CA-SA-2018SA011644

PATIENT
  Age: 51 Year
  Sex: Female

DRUGS (5)
  1. LEFLUNOMIDE. [Suspect]
     Active Substance: LEFLUNOMIDE
     Route: 048
  2. ENBREL [Suspect]
     Active Substance: ETANERCEPT
     Indication: RHEUMATOID ARTHRITIS
     Route: 065
     Dates: start: 20080403, end: 200809
  3. ARAVA [Concomitant]
     Active Substance: LEFLUNOMIDE
  4. PLAQUENIL [Suspect]
     Active Substance: HYDROXYCHLOROQUINE SULFATE
     Indication: RHEUMATOID ARTHRITIS
     Route: 048
  5. METHOTREXATE. [Suspect]
     Active Substance: METHOTREXATE
     Indication: RHEUMATOID ARTHRITIS
     Route: 065

REACTIONS (9)
  - Injection site pain [Unknown]
  - Injection site bruising [Unknown]
  - Drug effect decreased [Unknown]
  - Fibromyalgia [Unknown]
  - Limb injury [Unknown]
  - Road traffic accident [Unknown]
  - Rheumatoid arthritis [Unknown]
  - Headache [Recovered/Resolved]
  - Bone pain [Unknown]

NARRATIVE: CASE EVENT DATE: 2008
